FAERS Safety Report 15987656 (Version 5)
Quarter: 2019Q2

REPORT INFORMATION
  Report Type: Report from Study
  Country: US (occurrence: US)
  Receive Date: 20190220
  Receipt Date: 20190531
  Transmission Date: 20190711
  Serious: Yes (Hospitalization)
  Sender: FDA-Public Use
  Company Number: US-ACTELION-A-NJ2015-120479

PATIENT
  Sex: Female
  Weight: 54.42 kg

DRUGS (5)
  1. VELETRI [Suspect]
     Active Substance: EPOPROSTENOL
     Dosage: UNK
     Route: 042
  2. VELETRI [Suspect]
     Active Substance: EPOPROSTENOL
     Indication: PULMONARY ARTERIAL HYPERTENSION
     Dosage: 80 NG/KG, PER MIN
     Route: 042
     Dates: start: 20130125
  3. VELETRI [Suspect]
     Active Substance: EPOPROSTENOL
     Dosage: 86 NG/KG, PER MIN
     Route: 042
  4. LETAIRIS [Concomitant]
     Active Substance: AMBRISENTAN
  5. REVATIO [Concomitant]
     Active Substance: SILDENAFIL CITRATE

REACTIONS (12)
  - Diuretic therapy [Unknown]
  - Pulmonary arterial hypertension [Unknown]
  - Epistaxis [Unknown]
  - Catheter site pruritus [Unknown]
  - Skin infection [Unknown]
  - Catheter site irritation [Unknown]
  - Hypotension [Unknown]
  - Catheter site discharge [Unknown]
  - Fluid overload [Unknown]
  - Electrolyte imbalance [Unknown]
  - Catheterisation cardiac [Unknown]
  - Dyspnoea [Unknown]
